FAERS Safety Report 10509981 (Version 1)
Quarter: 2014Q4

REPORT INFORMATION
  Report Type: Spontaneous
  Country: US (occurrence: None)
  Receive Date: 20141009
  Receipt Date: 20141009
  Transmission Date: 20150528
  Serious: Yes (Death, Hospitalization)
  Sender: FDA-Public Use
  Company Number: None

PATIENT
  Age: 87 Year
  Sex: Male

DRUGS (9)
  1. FINASTERIDE. [Concomitant]
     Active Substance: FINASTERIDE
  2. OMEPRAZOLE. [Concomitant]
     Active Substance: OMEPRAZOLE
  3. REVLIMID [Suspect]
     Active Substance: LENALIDOMIDE
     Indication: PLASMA CELL MYELOMA
     Dosage: 10 MG DAILY X21D/28D ORALLY
     Route: 048
     Dates: start: 20140516, end: 20141001
  4. TERAZOSIN [Concomitant]
     Active Substance: TERAZOSIN\TERAZOSIN HYDROCHLORIDE
  5. METOPROLOL [Concomitant]
     Active Substance: METOPROLOL
  6. NEPHRO-VITO [Concomitant]
  7. METAMUCIL [Concomitant]
     Active Substance: PLANTAGO SEED
  8. DEXAMETHASONE. [Concomitant]
     Active Substance: DEXAMETHASONE
  9. SIMVASTATIN. [Concomitant]
     Active Substance: SIMVASTATIN

REACTIONS (12)
  - Depressed mood [None]
  - Pyrexia [None]
  - Fatigue [None]
  - Acute kidney injury [None]
  - General physical health deterioration [None]
  - Confusional state [None]
  - Diarrhoea [None]
  - Weight decreased [None]
  - Dysuria [None]
  - Asthenia [None]
  - Fall [None]
  - Hypophagia [None]

NARRATIVE: CASE EVENT DATE: 20141002
